FAERS Safety Report 4948831-3 (Version None)
Quarter: 2006Q1

REPORT INFORMATION
  Report Type: 
  Country: None (occurrence: None)
  Receive Date: 20060321
  Receipt Date: 20060309
  Transmission Date: 20060701
  Serious: Yes (Life-Threatening)
  Sender: FDA-Public Use
  Company Number: BR-JNJFOC-20060302976

PATIENT
  Age: 30 Year
  Sex: Male
  Weight: 125 kg

DRUGS (3)
  1. TOPAMAX [Suspect]
     Indication: EPILEPSY
     Dosage: ^APPROXIMATELY 5 MONTHS^
     Route: 048
  2. HALDOL [Suspect]
     Indication: EPILEPSY
     Dosage: ^DURING 10^
  3. DEPAKENE [Concomitant]
     Indication: EPILEPSY
     Dosage: ^SINCE 18 YEARS^

REACTIONS (7)
  - APHASIA [None]
  - CARDIAC DISORDER [None]
  - COORDINATION ABNORMAL [None]
  - DIFFICULTY IN WALKING [None]
  - DYSPHAGIA [None]
  - LUNG DISORDER [None]
  - RENAL DISORDER [None]
